FAERS Safety Report 25846471 (Version 2)
Quarter: 2025Q3

REPORT INFORMATION
  Report Type: Spontaneous
  Country: CA (occurrence: CA)
  Receive Date: 20250925
  Receipt Date: 20250925
  Transmission Date: 20251021
  Serious: Yes (Other)
  Sender: PFIZER
  Company Number: CA-PFIZER INC-202500188177

PATIENT
  Age: 65 Year
  Sex: Female

DRUGS (18)
  1. RITUXIMAB [Suspect]
     Active Substance: RITUXIMAB
  2. CALCIUM CHLORIDE [Suspect]
     Active Substance: CALCIUM CHLORIDE
  3. ASPIRIN [Suspect]
     Active Substance: ASPIRIN
  4. ADVAIR HFA [Suspect]
     Active Substance: FLUTICASONE PROPIONATE\SALMETEROL XINAFOATE
  5. AMLODIPINE BESYLATE [Suspect]
     Active Substance: AMLODIPINE BESYLATE
  6. BECLOMETHASONE [Suspect]
     Active Substance: BECLOMETHASONE
  7. CIPROFLOXACIN [Suspect]
     Active Substance: CIPROFLOXACIN
  8. CLONAZEPAM [Suspect]
     Active Substance: CLONAZEPAM
  9. ERGOCALCIFEROL [Suspect]
     Active Substance: ERGOCALCIFEROL
  10. FOLATE SODIUM [Suspect]
     Active Substance: FOLATE SODIUM
  11. MOXIFLOXACIN [Suspect]
     Active Substance: MOXIFLOXACIN
  12. PREDNISONE [Suspect]
     Active Substance: PREDNISONE
  13. RISEDRONATE SODIUM [Suspect]
     Active Substance: RISEDRONATE SODIUM
  14. ROSUVASTATIN [Suspect]
     Active Substance: ROSUVASTATIN
     Route: 058
  15. SINGULAIR [Suspect]
     Active Substance: MONTELUKAST SODIUM
  16. THEOPHYLLINE [Suspect]
     Active Substance: THEOPHYLLINE
  17. TRAMADOL HYDROCHLORIDE [Suspect]
     Active Substance: TRAMADOL HYDROCHLORIDE
  18. XOLAIR [Suspect]
     Active Substance: OMALIZUMAB

REACTIONS (5)
  - Asthma [Unknown]
  - Oedema [Unknown]
  - Vomiting [Unknown]
  - Drug hypersensitivity [Unknown]
  - Pneumonia [Unknown]
